FAERS Safety Report 4617908-4 (Version None)
Quarter: 2005Q1

REPORT INFORMATION
  Report Type: 
  Country: None (occurrence: None)
  Receive Date: 20050322
  Receipt Date: 20050314
  Transmission Date: 20050727
  Serious: Yes (Life-Threatening, Hospitalization)
  Sender: FDA-Public Use
  Company Number: BAY12-8039/OTHER

PATIENT
  Age: 20 Year
  Sex: Female
  Weight: 57 kg

DRUGS (9)
  1. AVELOX [Suspect]
     Indication: PYREXIA
     Dosage: 400 MG, QD, ORAL
     Route: 048
     Dates: start: 20031030, end: 20031102
  2. DESMIN [Suspect]
     Indication: CONTRACEPTION
     Dosage: ORAL
     Route: 048
     Dates: end: 20031104
  3. AZATHIOPRINE SODIUM [Suspect]
     Indication: SYSTEMIC LUPUS ERYTHEMATOSUS
     Dosage: 50 MG, TID, ORAL
     Route: 048
     Dates: start: 20010101, end: 20031104
  4. DIPYRONE INJ [Concomitant]
  5. PREDNISOLONE [Concomitant]
  6. PREDNISOLONE [Concomitant]
  7. PANTOPRAZOLE SODIUM [Concomitant]
  8. CALCIMAGON [Concomitant]
  9. IMUREK [Concomitant]

REACTIONS (22)
  - ANTINUCLEAR ANTIBODY POSITIVE [None]
  - AUTOIMMUNE DISORDER [None]
  - AUTOIMMUNE HEPATITIS [None]
  - BILIARY TRACT DISORDER [None]
  - C-REACTIVE PROTEIN INCREASED [None]
  - CHOLANGITIS [None]
  - CYTOMEGALOVIRUS ANTIBODY POSITIVE [None]
  - EPSTEIN-BARR VIRUS ANTIBODY POSITIVE [None]
  - HEPATOCELLULAR DAMAGE [None]
  - HEPATOSPLENOMEGALY [None]
  - HEPATOTOXICITY [None]
  - HERPES SIMPLEX SEROLOGY POSITIVE [None]
  - INFLAMMATION [None]
  - JAUNDICE [None]
  - LIVER DISORDER [None]
  - PYREXIA [None]
  - RUBELLA ANTIBODY POSITIVE [None]
  - SMOOTH MUSCLE ANTIBODY POSITIVE [None]
  - SYSTEMIC LUPUS ERYTHEMATOSUS [None]
  - TUMOUR MARKER INCREASED [None]
  - VARICELLA ZOSTER VIRUS SEROLOGY POSITIVE [None]
  - VOMITING [None]
